FAERS Safety Report 19243982 (Version 1)
Quarter: 2021Q2

REPORT INFORMATION
  Report Type: Other
  Country: CA (occurrence: CA)
  Receive Date: 20210512
  Receipt Date: 20210512
  Transmission Date: 20210717
  Serious: Yes (Other)
  Sender: FDA-Public Use
  Company Number: CA-CELLTRION INC.-2021CA006283

PATIENT

DRUGS (16)
  1. CALCIUM [Concomitant]
     Active Substance: CALCIUM
  2. METHYLPREDNISOLONE SODIUM SUCCINATE. [Concomitant]
     Active Substance: METHYLPREDNISOLONE SODIUM SUCCINATE
     Indication: PREMEDICATION
     Dosage: UNK
     Route: 042
  3. BENADRYL [Concomitant]
     Active Substance: DIPHENHYDRAMINE HYDROCHLORIDE
     Indication: PREMEDICATION
     Route: 048
  4. NORTRIPTYLINE HYDROCHLORIDE. [Concomitant]
     Active Substance: NORTRIPTYLINE HYDROCHLORIDE
  5. PREDNISONE. [Concomitant]
     Active Substance: PREDNISONE
  6. RITUXIMAB (UNKNOWN) [Suspect]
     Active Substance: RITUXIMAB
     Indication: NEUROMYELITIS OPTICA SPECTRUM DISORDER
     Route: 042
  7. PANTOPRAZOLE [Concomitant]
     Active Substance: PANTOPRAZOLE
  8. CANDESARTAN. [Concomitant]
     Active Substance: CANDESARTAN
  9. TURMERIC [CURCUMA LONGA] [Concomitant]
     Active Substance: HERBALS\TURMERIC
  10. ZINC. [Concomitant]
     Active Substance: ZINC
  11. METFORMIN [Concomitant]
     Active Substance: METFORMIN HYDROCHLORIDE
     Route: 065
  12. GABAPENTIN. [Concomitant]
     Active Substance: GABAPENTIN
  13. INSULIN [Concomitant]
     Active Substance: INSULIN NOS
  14. MAGNESIUM [Concomitant]
     Active Substance: MAGNESIUM
  15. TYLENOL [Concomitant]
     Active Substance: ACETAMINOPHEN
     Indication: PREMEDICATION
     Route: 048
  16. METHYLPREDNISOLONE SODIUM SUCCINATE. [Concomitant]
     Active Substance: METHYLPREDNISOLONE SODIUM SUCCINATE
     Dosage: UNK
     Route: 048

REACTIONS (3)
  - Off label use [Unknown]
  - Tuberculosis [Unknown]
  - Hypersensitivity [Unknown]
